FAERS Safety Report 4651074-4 (Version None)
Quarter: 2005Q2

REPORT INFORMATION
  Report Type: 
  Country: None (occurrence: None)
  Receive Date: 20050429
  Receipt Date: 20050421
  Transmission Date: 20051028
  Serious: Yes (Hospitalization)
  Sender: FDA-Public Use
  Company Number: 2005063307

PATIENT
  Sex: Female
  Weight: 81.6475 kg

DRUGS (10)
  1. DETROL LA [Suspect]
     Indication: BLADDER DISORDER
     Dosage: 4 MG (4 MG, 1 IN 1 D), ORAL
     Route: 048
     Dates: start: 20030101
  2. AMLODIPINE BESYLATE [Concomitant]
  3. METOPROLOL SUCCINATE [Concomitant]
  4. HYDROCHLOROTHIAZIDE/OLMESARTAN (HYDROCHLOROTHAZIDE, OLMESARTAN) [Concomitant]
  5. DOXAZOSIN (DOXAZOSIN) [Concomitant]
  6. METFORMIN HCL [Concomitant]
  7. GLYBURIDE [Concomitant]
  8. ASPIRIN [Concomitant]
  9. BECOSYM FORTE (NICOTINAMIDE, PYRIDOXINE HYDROCHLORIDE, RIBOFLAVIN,THIA [Concomitant]
  10. VITAMINS (VITAMINS) [Concomitant]

REACTIONS (2)
  - DRUG EFFECT DECREASED [None]
  - KNEE OPERATION [None]
